FAERS Safety Report 9283289 (Version 1)
Quarter: 2013Q2

REPORT INFORMATION
  Report Type: Spontaneous
  Country: US (occurrence: US)
  Receive Date: 20130510
  Receipt Date: 20130510
  Transmission Date: 20140414
  Serious: No
  Sender: FDA-Public Use
  Company Number: US-GLAXOSMITHKLINE-A0994959A

PATIENT
  Age: 65 Year
  Sex: Female
  Weight: 69.8 kg

DRUGS (7)
  1. TYKERB [Suspect]
     Indication: BREAST CANCER
     Dosage: 1250MG PER DAY
     Route: 048
     Dates: start: 20120906
  2. ONDANSETRON [Concomitant]
     Dosage: 8MG AS REQUIRED
     Route: 048
  3. SERTRALINE [Concomitant]
     Indication: DEPRESSION
     Dosage: 50MG PER DAY
     Route: 048
     Dates: start: 20120920
  4. OMEPRAZOLE [Concomitant]
     Indication: GASTROOESOPHAGEAL REFLUX DISEASE
     Dosage: 20MG TWICE PER DAY
     Route: 048
     Dates: start: 20120920
  5. OXYCODONE [Concomitant]
     Indication: PAIN
     Dosage: 10MG AS REQUIRED
     Route: 048
  6. MORPHINE [Concomitant]
     Indication: PAIN
     Dosage: 30MG THREE TIMES PER DAY
     Route: 048
  7. CAPECITABINE [Concomitant]
     Indication: BREAST CANCER
     Dosage: 1500MG TWICE PER DAY
     Route: 048
     Dates: start: 20120809

REACTIONS (1)
  - Dysphagia [Recovered/Resolved]
